FAERS Safety Report 9411955 (Version 1)
Quarter: 2013Q3

REPORT INFORMATION
  Report Type: Spontaneous
  Country: CO (occurrence: CO)
  Receive Date: 20130722
  Receipt Date: 20130722
  Transmission Date: 20140515
  Serious: Yes (Death, Other)
  Sender: FDA-Public Use
  Company Number: PHHY2013CO076886

PATIENT
  Age: 15 Year
  Sex: Female

DRUGS (3)
  1. IMATINIB [Suspect]
     Indication: GASTROINTESTINAL STROMAL TUMOUR
     Dosage: 400 MG, DAILY FOR 1 MONTH
  2. IMATINIB [Suspect]
     Dosage: UNK
     Dates: start: 200907
  3. SUNITINIB [Suspect]
     Dosage: 50 MG, DAILY
     Dates: start: 200810

REACTIONS (4)
  - Multi-organ failure [Fatal]
  - Gastrointestinal stromal tumour [Unknown]
  - Neoplasm recurrence [Unknown]
  - Mass [Unknown]
